FAERS Safety Report 4841832-5 (Version None)
Quarter: 2005Q4

REPORT INFORMATION
  Report Type: 
  Country: None (occurrence: None)
  Receive Date: 20051130
  Receipt Date: 20051118
  Transmission Date: 20060501
  Serious: Yes (Hospitalization)
  Sender: FDA-Public Use
  Company Number: PHNU2005DE03808

PATIENT
  Age: 74 Year
  Sex: Male

DRUGS (2)
  1. MYFORTIC [Suspect]
     Indication: PHOTOSENSITIVITY REACTION
     Dosage: 1 DF, BID
     Dates: end: 20051108
  2. MYFORTIC [Suspect]
     Dosage: 1 DF, BID
     Dates: start: 20051111

REACTIONS (2)
  - GASTROINTESTINAL DISORDER [None]
  - PHOTOSENSITIVITY REACTION [None]
